FAERS Safety Report 9277034 (Version 2)
Quarter: 2013Q3

REPORT INFORMATION
  Report Type: Spontaneous
  Country: US (occurrence: US)
  Receive Date: 20130507
  Receipt Date: 20130703
  Transmission Date: 20140515
  Serious: Yes (Life-Threatening, Hospitalization)
  Sender: FDA-Public Use
  Company Number: US-FRI-1000044862

PATIENT
  Age: 56 Year
  Sex: Female
  Weight: 101.4 kg

DRUGS (24)
  1. DALIRESP [Suspect]
     Indication: CHRONIC OBSTRUCTIVE PULMONARY DISEASE
     Dosage: 500 MCG
     Route: 048
     Dates: start: 20130101, end: 20130212
  2. FOSAMAX [Concomitant]
  3. CALCIUM [Concomitant]
  4. COREG [Concomitant]
  5. BENADRYL [Concomitant]
  6. ADVAIR [Concomitant]
  7. NEURONTIN [Concomitant]
  8. MUCINEX [Concomitant]
  9. ACIDOPHILUS [Concomitant]
  10. ALBUTEROL [Concomitant]
     Route: 055
  11. LISINOPRIL [Concomitant]
  12. MAG-OX [Concomitant]
  13. MELATONIN [Concomitant]
  14. SINGULAIR [Concomitant]
  15. PERCOCET [Concomitant]
  16. PROTONIX [Concomitant]
  17. PREDNISONE [Concomitant]
     Dosage: TAPER
  18. POTASSIUM CHLORIDE [Concomitant]
  19. CRESTOR [Concomitant]
  20. ZOLOFT [Concomitant]
  21. SPIRIVA [Concomitant]
  22. LASIX [Concomitant]
  23. VITAMIN B [Concomitant]
  24. COUMADIN [Concomitant]
     Dates: end: 20130213

REACTIONS (1)
  - Thrombocytopenia [Recovered/Resolved with Sequelae]
